FAERS Safety Report 7176821-1 (Version None)
Quarter: 2011Q1

REPORT INFORMATION
  Report Type: 
  Country: None (occurrence: None)
  Receive Date: 20101207
  Receipt Date: 20101122
  Transmission Date: 20110831
  Serious: Yes (Disabling, Other)
  Sender: FDA-Public Use
  Company Number: ACO_20566_2010

PATIENT
  Age: 71 Year
  Sex: Female

DRUGS (1)
  1. AMPYRA [Suspect]
     Indication: GAIT DISTURBANCE
     Dosage: 10 MG, Q 12 HRS
     Dates: start: 20101101, end: 20101101

REACTIONS (5)
  - MULTIPLE SCLEROSIS RELAPSE [None]
  - HEADACHE [None]
  - FALL [None]
  - INSOMNIA [None]
  - HEAD INJURY [None]
